FAERS Safety Report 16953634 (Version 1)
Quarter: 2019Q4

REPORT INFORMATION
  Report Type: Spontaneous
  Country: US (occurrence: US)
  Receive Date: 20191023
  Receipt Date: 20191023
  Transmission Date: 20200122
  Serious: No
  Sender: FDA-Public Use
  Company Number: US-DERMIRA, INC.-US-2019DER000435

PATIENT
  Age: 49 Year
  Sex: Female
  Weight: 88.44 kg

DRUGS (4)
  1. SYMBICORT [Concomitant]
     Active Substance: BUDESONIDE\FORMOTEROL FUMARATE DIHYDRATE
     Indication: ASTHMA
     Dosage: 2 PUFFS, BID
     Dates: start: 2000
  2. QBREXZA [Suspect]
     Active Substance: GLYCOPYRRONIUM TOSYLATE
     Indication: HYPERHIDROSIS
     Dosage: UNK, QOD
     Route: 061
     Dates: start: 20190721
  3. QBREXZA [Suspect]
     Active Substance: GLYCOPYRRONIUM TOSYLATE
     Dosage: UNK, QD
     Route: 061
     Dates: start: 201906, end: 20190720
  4. QBREXZA [Suspect]
     Active Substance: GLYCOPYRRONIUM TOSYLATE
     Dosage: UNK, QD
     Route: 061
     Dates: start: 201809, end: 201810

REACTIONS (7)
  - Mydriasis [Recovered/Resolved]
  - Dry mouth [Unknown]
  - Wrong technique in product usage process [Unknown]
  - Off label use [Unknown]
  - Thirst [Recovering/Resolving]
  - Feeling abnormal [Unknown]
  - Dry throat [Recovering/Resolving]

NARRATIVE: CASE EVENT DATE: 2018
